FAERS Safety Report 21112228 (Version 1)
Quarter: 2022Q3

REPORT INFORMATION
  Report Type: Spontaneous
  Country: IT (occurrence: IT)
  Receive Date: 20220721
  Receipt Date: 20220721
  Transmission Date: 20221027
  Serious: Yes (Other)
  Sender: FDA-Public Use
  Company Number: None

PATIENT
  Age: 56 Year
  Sex: Female

DRUGS (4)
  1. DELORAZEPAM [Suspect]
     Active Substance: DELORAZEPAM
     Indication: Product used for unknown indication
     Dosage: 1 MILLIGRAM PER MILLILITRE  (100 ML / TOTAL)
     Route: 048
     Dates: start: 20220328
  2. SERTRALINE [Suspect]
     Active Substance: SERTRALINE HYDROCHLORIDE
     Indication: Product used for unknown indication
     Dosage: 750 MILLIGRAM (SERTRALINE 50 MG 15 TABLETS / TOTAL)
     Route: 048
  3. Levopraid [Concomitant]
     Dosage: 12.5 MILLIGRAM, QD  12.5+12.5+12.5MG
     Route: 048
  4. ATARAX [Concomitant]
     Active Substance: HYDROXYZINE HYDROCHLORIDE
     Dosage: 25 MILLIGRAM, QD (25MG / DAY)
     Route: 048

REACTIONS (3)
  - Drug abuse [Recovered/Resolved]
  - Intentional self-injury [Unknown]
  - Psychomotor skills impaired [Recovered/Resolved]

NARRATIVE: CASE EVENT DATE: 20220328
